FAERS Safety Report 13652542 (Version 1)
Quarter: 2017Q2

REPORT INFORMATION
  Report Type: Spontaneous
  Country: US (occurrence: US)
  Receive Date: 20170614
  Receipt Date: 20170614
  Transmission Date: 20170830
  Serious: Yes (Other)
  Sender: FDA-Public Use
  Company Number: US-ROCHE-1371740

PATIENT
  Sex: Female

DRUGS (1)
  1. XELODA [Suspect]
     Active Substance: CAPECITABINE
     Indication: COLON CANCER
     Dosage: BIDX 14DAYS
     Route: 048
     Dates: start: 20140129

REACTIONS (7)
  - Abdominal pain upper [Unknown]
  - Hypoaesthesia [Unknown]
  - Diarrhoea [Unknown]
  - Flatulence [Unknown]
  - Insomnia [Unknown]
  - Nausea [Unknown]
  - Headache [Not Recovered/Not Resolved]
